FAERS Safety Report 5154167-0 (Version None)
Quarter: 2006Q4

REPORT INFORMATION
  Report Type: 
  Country: None (occurrence: None)
  Receive Date: 20061116
  Receipt Date: 20061116
  Transmission Date: 20070319
  Serious: Yes (Life-Threatening, Hospitalization, Other)
  Sender: FDA-Public Use
  Company Number: None

PATIENT
  Sex: Female
  Weight: 58.0604 kg

DRUGS (1)
  1. PAXIL [Suspect]
     Indication: DEPRESSION
     Dosage: 20MG  ONCE A DAY IN AM PO
     Route: 048
     Dates: start: 19950805, end: 19990615

REACTIONS (14)
  - ANOREXIA [None]
  - COGNITIVE DISORDER [None]
  - DEPRESSION [None]
  - DIVORCED [None]
  - EDUCATIONAL PROBLEM [None]
  - FATIGUE [None]
  - GASTROINTESTINAL DISORDER [None]
  - LIBIDO DISORDER [None]
  - LOSS OF EMPLOYMENT [None]
  - MALAISE [None]
  - SEDATION [None]
  - SOMNOLENCE [None]
  - SUICIDE ATTEMPT [None]
  - WEIGHT DECREASED [None]
